FAERS Safety Report 7782135-9 (Version None)
Quarter: 2011Q3

REPORT INFORMATION
  Report Type: 
  Country: None (occurrence: None)
  Receive Date: 20110927
  Receipt Date: 20110914
  Transmission Date: 20111222
  Serious: Yes (Hospitalization, Other)
  Sender: FDA-Public Use
  Company Number: US-ELI_LILLY_AND_COMPANY-US201109004796

PATIENT
  Sex: Female

DRUGS (2)
  1. FORTEO [Suspect]
     Indication: COMPRESSION FRACTURE
     Dosage: UNK, UNKNOWN
     Route: 065
     Dates: start: 20060901, end: 20080901
  2. RECLAST [Concomitant]
     Dosage: UNK
     Dates: start: 20080901

REACTIONS (4)
  - OFF LABEL USE [None]
  - BALANCE DISORDER [None]
  - PELVIC FRACTURE [None]
  - FALL [None]
